FAERS Safety Report 18019178 (Version 3)
Quarter: 2020Q3

REPORT INFORMATION
  Report Type: Report from Study
  Country: IT (occurrence: IT)
  Receive Date: 20200714
  Receipt Date: 20200721
  Transmission Date: 20201103
  Serious: Yes (Hospitalization, Other)
  Sender: FDA-Public Use
  Company Number: IT-AMGEN-ITACT2020109661

PATIENT
  Age: 55 Year
  Sex: Female

DRUGS (17)
  1. METHOTREXATE. [Suspect]
     Active Substance: METHOTREXATE
     Indication: ACUTE LYMPHOCYTIC LEUKAEMIA
     Dosage: 20 MILLIGRAM
     Route: 042
     Dates: start: 20200520
  2. OMEPRAZOLO [Concomitant]
     Active Substance: OMEPRAZOLE
  3. METHOTREXATE. [Suspect]
     Active Substance: METHOTREXATE
     Dosage: 20 MILLIGRAM
     Route: 042
     Dates: start: 20200603
  4. BACTRIM [Concomitant]
     Active Substance: SULFAMETHOXAZOLE\TRIMETHOPRIM
  5. LASIX [Concomitant]
     Active Substance: FUROSEMIDE
  6. BISOPROLOLO [Concomitant]
     Active Substance: BISOPROLOL FUMARATE
  7. BLINATUMOMAB [Suspect]
     Active Substance: BLINATUMOMAB
     Indication: ACUTE LYMPHOCYTIC LEUKAEMIA
     Dosage: UNK
     Route: 065
     Dates: start: 20191016, end: 20191113
  8. BLINATUMOMAB [Suspect]
     Active Substance: BLINATUMOMAB
     Dosage: UNK
     Route: 065
     Dates: start: 20200128, end: 20200227
  9. MERCAPTOPURINE. [Suspect]
     Active Substance: MERCAPTOPURINE
     Dosage: UNK
     Route: 048
     Dates: start: 20200527, end: 20200609
  10. ACICLOVIR [Concomitant]
     Active Substance: ACYCLOVIR
  11. METHOTREXATE. [Suspect]
     Active Substance: METHOTREXATE
     Dosage: 20 MILLIGRAM
     Route: 042
     Dates: start: 20200527
  12. OMEGA 3 [FISH OIL] [Concomitant]
     Active Substance: FISH OIL
  13. SPIRONOLACTONE. [Concomitant]
     Active Substance: SPIRONOLACTONE
  14. ALLOPURINOLO [Concomitant]
     Active Substance: ALLOPURINOL
  15. CYCLOPHOSPHAMIDE. [Suspect]
     Active Substance: CYCLOPHOSPHAMIDE
     Indication: ACUTE LYMPHOCYTIC LEUKAEMIA
     Dosage: 100 MILLIGRAM
     Route: 048
     Dates: start: 20200513, end: 20200516
  16. MERCAPTOPURINE. [Suspect]
     Active Substance: MERCAPTOPURINE
     Indication: ACUTE LYMPHOCYTIC LEUKAEMIA
     Dosage: UNK
     Route: 048
     Dates: start: 20200520, end: 20200522
  17. ELIQUIS [Concomitant]
     Active Substance: APIXABAN

REACTIONS (1)
  - Hepatotoxicity [Recovered/Resolved]

NARRATIVE: CASE EVENT DATE: 20200613
